FAERS Safety Report 7459613-5 (Version None)
Quarter: 2011Q2

REPORT INFORMATION
  Report Type: 
  Country: None (occurrence: None)
  Receive Date: 20110505
  Receipt Date: 20110428
  Transmission Date: 20111010
  Serious: Yes (Other)
  Sender: FDA-Public Use
  Company Number: PHHY2009BR49060

PATIENT
  Age: 60 Year
  Sex: Female

DRUGS (2)
  1. TAMOXIFEN [Concomitant]
  2. ACLASTA [Suspect]
     Indication: OSTEOPOROSIS POSTMENOPAUSAL
     Dosage: 5 MG, ONCE/SINGLE

REACTIONS (8)
  - EXOPHTHALMOS [None]
  - PAROPHTHALMIA [None]
  - EYE SWELLING [None]
  - OCULAR HYPERAEMIA [None]
  - EYELID OEDEMA [None]
  - ORBITAL OEDEMA [None]
  - CONJUNCTIVAL OEDEMA [None]
  - EYE PAIN [None]
